FAERS Safety Report 14879799 (Version 2)
Quarter: 2018Q2

REPORT INFORMATION
  Report Type: Report from Study
  Country: BR (occurrence: BR)
  Receive Date: 20180511
  Receipt Date: 20180511
  Transmission Date: 20180711
  Serious: Yes (Hospitalization, Other)
  Sender: FDA-Public Use
  Company Number: PHHY2018BR004112

PATIENT
  Age: 94 Year
  Sex: Female

DRUGS (4)
  1. QUETIAPINE. [Suspect]
     Active Substance: QUETIAPINE
     Indication: CONFUSIONAL STATE
  2. EXELON PATCH [Suspect]
     Active Substance: RIVASTIGMINE
     Indication: DEMENTIA ALZHEIMER^S TYPE
     Dosage: 9.5 MG, QD PATCH 10 (CM2)
     Route: 062
  3. QUETIAPINE. [Suspect]
     Active Substance: QUETIAPINE
     Indication: AGITATION
     Dosage: 25 MG, QD
     Route: 048
     Dates: start: 20180424
  4. QUETIAPINE. [Suspect]
     Active Substance: QUETIAPINE
     Indication: DYSARTHRIA

REACTIONS (12)
  - General physical condition abnormal [Not Recovered/Not Resolved]
  - Somnolence [Recovering/Resolving]
  - Accident [Recovering/Resolving]
  - Fall [Unknown]
  - Femur fracture [Recovering/Resolving]
  - Sedation [Recovered/Resolved with Sequelae]
  - Confusional state [Recovering/Resolving]
  - Neurological decompensation [Recovering/Resolving]
  - Dysarthria [Recovering/Resolving]
  - Mental impairment [Recovering/Resolving]
  - Psychotic disorder [Recovering/Resolving]
  - Agitation [Recovering/Resolving]

NARRATIVE: CASE EVENT DATE: 20180415
